FAERS Safety Report 7787332-4 (Version None)
Quarter: 2011Q3

REPORT INFORMATION
  Report Type: 
  Country: None (occurrence: None)
  Receive Date: 20110929
  Receipt Date: 20110920
  Transmission Date: 20111222
  Serious: Yes (Other)
  Sender: FDA-Public Use
  Company Number: PHHY2011GB83326

PATIENT
  Age: 67 Year
  Sex: Female

DRUGS (3)
  1. ABILIFY [Suspect]
     Dosage: 30 MG, BID
  2. LAMOTRIGINE [Suspect]
  3. ABILIFY [Suspect]
     Dosage: 20 MG, BID
     Dates: start: 20110908

REACTIONS (4)
  - PSYCHOTIC DISORDER [None]
  - DEMENTIA [None]
  - DELUSION [None]
  - DEPRESSION [None]
